FAERS Safety Report 8303070-3 (Version None)
Quarter: 2012Q2

REPORT INFORMATION
  Report Type: 
  Country: None (occurrence: None)
  Receive Date: 20120422
  Receipt Date: 20120418
  Transmission Date: 20120825
  Serious: Yes (Hospitalization)
  Sender: FDA-Public Use
  Company Number: IT-BRISTOL-MYERS SQUIBB COMPANY-16501983

PATIENT
  Age: 82 Year
  Sex: Female

DRUGS (10)
  1. COUMADIN [Suspect]
     Indication: ATRIAL FIBRILLATION
     Route: 048
     Dates: start: 20120220, end: 20120312
  2. CARVEDILOL [Concomitant]
     Route: 048
  3. LANSOPRAZOLE [Concomitant]
     Route: 048
  4. BARNIDIPINE [Concomitant]
     Dosage: BARNIDIPINA CLORIDRATO 10MG/ORALLY;
     Route: 048
  5. DOXAZOSIN MESYLATE [Concomitant]
     Route: 048
  6. LEVOTIROXINA [Concomitant]
     Route: 048
  7. AMIODARONE HCL [Concomitant]
     Route: 048
  8. URSODIOL [Concomitant]
     Route: 048
  9. QUINAPRIL HCL + HCTZ [Concomitant]
     Route: 048
  10. NITROGLICERINA [Concomitant]
     Dosage: TRANSDERMAL PATCHES 10MG/TRANSDERMAL
     Route: 062

REACTIONS (3)
  - INTERNATIONAL NORMALISED RATIO INCREASED [None]
  - HAEMATOMA [None]
  - ANAEMIA [None]
